FAERS Safety Report 9905470 (Version 1)
Quarter: 2014Q1

REPORT INFORMATION
  Report Type: Spontaneous
  Country: AU (occurrence: None)
  Receive Date: 20140211
  Receipt Date: 20140211
  Transmission Date: 20141002
  Serious: Yes (Hospitalization)
  Sender: FDA-Public Use
  Company Number: 2014000032

PATIENT
  Age: 53 Year
  Sex: Male
  Weight: 116 kg

DRUGS (5)
  1. ACEON (PERINDOPRIL ERBUMINE) TABLET [Suspect]
     Indication: PRODUCT USED FOR UNKNOWN INDICATION
     Dates: start: 20130828, end: 20130901
  2. ROSUVASTATIN (ROSUVASTATIN) [Suspect]
     Indication: PRODUCT USED FOR UNKNOWN INDICATION
     Dates: start: 20130828, end: 20130901
  3. TICAGRELOR (TICAGRELOR) [Suspect]
     Indication: PRODUCT USED FOR UNKNOWN INDICATION
     Dates: start: 20130827, end: 20130901
  4. ISOSORBIDE MONONITRATE [Concomitant]
  5. METOPROLOL [Concomitant]

REACTIONS (3)
  - Rash erythematous [None]
  - Rash pruritic [None]
  - Rash generalised [None]
